FAERS Safety Report 5851121-8 (Version None)
Quarter: 2008Q3

REPORT INFORMATION
  Report Type: 
  Country: None (occurrence: None)
  Receive Date: 20080820
  Receipt Date: 20080814
  Transmission Date: 20090109
  Serious: Yes (Other)
  Sender: FDA-Public Use
  Company Number: B0361652A

PATIENT
  Age: 34 Year
  Sex: Female

DRUGS (1)
  1. PAROXETINE HCL [Suspect]
     Route: 065
     Dates: start: 19980318

REACTIONS (20)
  - AGITATION [None]
  - ANXIETY [None]
  - DISTURBANCE IN ATTENTION [None]
  - DIZZINESS [None]
  - DRUG DEPENDENCE [None]
  - DRUG WITHDRAWAL SYNDROME [None]
  - HEADACHE [None]
  - INSOMNIA [None]
  - MALAISE [None]
  - MUSCLE SPASMS [None]
  - MYALGIA [None]
  - NAUSEA [None]
  - NERVOUS SYSTEM DISORDER [None]
  - NIGHTMARE [None]
  - PARAESTHESIA [None]
  - SOMNOLENCE [None]
  - TREMOR [None]
  - VERTIGO [None]
  - VISION BLURRED [None]
  - VOMITING [None]
